FAERS Safety Report 4784046-X (Version None)
Quarter: 2005Q3

REPORT INFORMATION
  Report Type: 
  Country: None (occurrence: None)
  Receive Date: 20050928
  Receipt Date: 20050913
  Transmission Date: 20060218
  Serious: Yes (Hospitalization, Other)
  Sender: FDA-Public Use
  Company Number: USA0508106625

PATIENT
  Age: 80 Year
  Sex: Female

DRUGS (1)
  1. FORTEO [Suspect]
     Indication: OSTEOPOROSIS
     Dosage: 20 UG DAY
     Dates: start: 20040401, end: 20050801

REACTIONS (4)
  - BREAST CANCER IN SITU [None]
  - BREAST CYST [None]
  - OVERDOSE [None]
  - POST PROCEDURAL COMPLICATION [None]
